FAERS Safety Report 8125156-9 (Version None)
Quarter: 2012Q1

REPORT INFORMATION
  Report Type: 
  Country: None (occurrence: None)
  Receive Date: 20120209
  Receipt Date: 20120202
  Transmission Date: 20120608
  Serious: Yes (Hospitalization, Other)
  Sender: FDA-Public Use
  Company Number: US-US-EMD SERONO, INC.-7106589

PATIENT
  Sex: Female

DRUGS (4)
  1. PSYCHIATRIC MEDICATIONS [Concomitant]
  2. REBIF [Suspect]
     Indication: MULTIPLE SCLEROSIS
     Route: 058
     Dates: start: 20070926
  3. GABLOFEN [Concomitant]
     Route: 037
  4. ABILIFY [Concomitant]

REACTIONS (5)
  - CONVULSION [None]
  - INSOMNIA [None]
  - MUSCLE CONTRACTURE [None]
  - FEELING ABNORMAL [None]
  - MUSCLE RIGIDITY [None]
